FAERS Safety Report 17520253 (Version 1)
Quarter: 2020Q1

REPORT INFORMATION
  Report Type: Spontaneous
  Country: US (occurrence: US)
  Receive Date: 20200226
  Receipt Date: 20200226
  Transmission Date: 20200409
  Serious: Yes (Hospitalization)
  Sender: FDA-Public Use
  Company Number: None

PATIENT
  Age: 72 Year
  Sex: Male
  Weight: 69.34 kg

DRUGS (4)
  1. FOSAPREPITANT DIMEGLUMINE. [Suspect]
     Active Substance: FOSAPREPITANT DIMEGLUMINE
     Dates: end: 20200212
  2. OLANZAPINE. [Suspect]
     Active Substance: OLANZAPINE
     Dates: end: 20200215
  3. ALOXI [Suspect]
     Active Substance: PALONOSETRON HYDROCHLORIDE
     Dates: end: 20200212
  4. DEXAMETHASONE. [Suspect]
     Active Substance: DEXAMETHASONE
     Dates: end: 20200215

REACTIONS (13)
  - Pyrexia [None]
  - Septic shock [None]
  - Chills [None]
  - Abdominal pain [None]
  - Citrobacter sepsis [None]
  - Pancytopenia [None]
  - Pyelonephritis [None]
  - Constipation [None]
  - Penile pain [None]
  - Tachycardia [None]
  - Immunodeficiency [None]
  - Gastrointestinal sounds abnormal [None]
  - Urinary tract infection [None]

NARRATIVE: CASE EVENT DATE: 20200218
